FAERS Safety Report 9461425 (Version 1)
Quarter: 2013Q3

REPORT INFORMATION
  Report Type: Spontaneous
  Country: US (occurrence: None)
  Receive Date: 20130814
  Receipt Date: 20130814
  Transmission Date: 20140515
  Serious: Yes (Other)
  Sender: FDA-Public Use
  Company Number: None

PATIENT
  Age: 34 Year
  Sex: Female
  Weight: 79.38 kg

DRUGS (1)
  1. PARAGARD IUD SUPPOSED TO BE HORMONE FREE PARAGARD [Suspect]

REACTIONS (2)
  - Rash [None]
  - Vaginal discharge [None]
